FAERS Safety Report 22387537 (Version 1)
Quarter: 2023Q2

REPORT INFORMATION
  Report Type: Other
  Country: UY (occurrence: None)
  Receive Date: 20230531
  Receipt Date: 20230531
  Transmission Date: 20230722
  Serious: Yes (Hospitalization)
  Sender: FDA-Public Use
  Company Number: UY-ROCHE-3356967

PATIENT

DRUGS (3)
  1. MYCOPHENOLATE MOFETIL [Suspect]
     Active Substance: MYCOPHENOLATE MOFETIL
     Indication: Immune system disorder
     Dosage: 1,500 +/- 540 MG, INTERQUARTILE RANGE: 1,000 - 2,000 MG/D.
     Route: 065
  2. METHYLPREDNISOLONE [Suspect]
     Active Substance: METHYLPREDNISOLONE
     Indication: Immune system disorder
     Route: 065
  3. PREDNISONE [Suspect]
     Active Substance: PREDNISONE
     Indication: Immune system disorder
     Dosage: 6 MONTHS PRIOR TO THE START OF MMF WAS 21.8 (9.3) MG/D AND LATER IT WAS 12.1 (6) MG/D
     Route: 065

REACTIONS (4)
  - Infection [Unknown]
  - Diarrhoea [Unknown]
  - Leukopenia [Unknown]
  - Off label use [Unknown]
